FAERS Safety Report 15785816 (Version 2)
Quarter: 2019Q1

REPORT INFORMATION
  Report Type: Spontaneous
  Country: US (occurrence: US)
  Receive Date: 20190103
  Receipt Date: 20190110
  Transmission Date: 20190417
  Serious: Yes (Hospitalization, Other)
  Sender: FDA-Public Use
  Company Number: US-ASTRAZENECA-2018SF47716

PATIENT
  Age: 26573 Day
  Sex: Female
  Weight: 128.8 kg

DRUGS (32)
  1. LANTUS [Concomitant]
     Active Substance: INSULIN GLARGINE
  2. CETRIZINE [Concomitant]
     Active Substance: CETIRIZINE HYDROCHLORIDE
  3. VITAMIN D [Concomitant]
     Active Substance: CHOLECALCIFEROL
  4. DIFLUCAN [Concomitant]
     Active Substance: FLUCONAZOLE
  5. ISOSORBIDE MONONITRATE. [Concomitant]
     Active Substance: ISOSORBIDE MONONITRATE
  6. NEXIUM [Suspect]
     Active Substance: ESOMEPRAZOLE MAGNESIUM
     Route: 048
     Dates: start: 2013, end: 2015
  7. NEXIUM [Suspect]
     Active Substance: ESOMEPRAZOLE MAGNESIUM
     Route: 048
     Dates: start: 20140429
  8. IPRATROPIUM [Concomitant]
     Active Substance: IPRATROPIUM
  9. NIFEDIPINE. [Concomitant]
     Active Substance: NIFEDIPINE
  10. OXYCODONE [Concomitant]
     Active Substance: OXYCODONE
  11. ASPIRIN. [Concomitant]
     Active Substance: ASPIRIN
  12. COLCHICINE. [Concomitant]
     Active Substance: COLCHICINE
  13. FLUTICASONE. [Concomitant]
     Active Substance: FLUTICASONE
  14. LOSARTAN. [Concomitant]
     Active Substance: LOSARTAN
  15. MELATONIN [Concomitant]
     Active Substance: MELATONIN
  16. TORSEMIDE. [Concomitant]
     Active Substance: TORSEMIDE
  17. TYLENOL [Concomitant]
     Active Substance: ACETAMINOPHEN
  18. PANTOPRAZOLE [Concomitant]
     Active Substance: PANTOPRAZOLE
  19. OMEPRAZOLE. [Concomitant]
     Active Substance: OMEPRAZOLE
     Dates: start: 20130606
  20. ATORVASTATIN [Concomitant]
     Active Substance: ATORVASTATIN
  21. COREG [Concomitant]
     Active Substance: CARVEDILOL
  22. DOXAZOSIN [Concomitant]
     Active Substance: DOXAZOSIN\DOXAZOSIN MESYLATE
  23. SOMA [Concomitant]
     Active Substance: CARISOPRODOL
  24. ULORIC [Concomitant]
     Active Substance: FEBUXOSTAT
  25. OMEPRAZOLE. [Concomitant]
     Active Substance: OMEPRAZOLE
     Dates: start: 20130509
  26. PANTOPRAZOLE SODIUM. [Concomitant]
     Active Substance: PANTOPRAZOLE SODIUM
  27. ONDANSETRON [Concomitant]
     Active Substance: ONDANSETRON
  28. HYDRALAZINE [Concomitant]
     Active Substance: HYDRALAZINE HYDROCHLORIDE
  29. IRON POLYSACCHARIDES [Concomitant]
  30. NOVOLOG [Concomitant]
     Active Substance: INSULIN ASPART
  31. RANITIDINE. [Concomitant]
     Active Substance: RANITIDINE
  32. SODIUM BICARBONATE. [Concomitant]
     Active Substance: SODIUM BICARBONATE

REACTIONS (5)
  - Chronic kidney disease [Unknown]
  - Renal failure [Unknown]
  - Nephrogenic anaemia [Unknown]
  - End stage renal disease [Unknown]
  - Acute kidney injury [Unknown]

NARRATIVE: CASE EVENT DATE: 20170502
